FAERS Safety Report 8393214-X (Version None)
Quarter: 2012Q2

REPORT INFORMATION
  Report Type: 
  Country: None (occurrence: None)
  Receive Date: 20120529
  Receipt Date: 20120518
  Transmission Date: 20120825
  Serious: No
  Sender: FDA-Public Use
  Company Number: US-ABBOTT-12P-163-0936565-00

PATIENT
  Sex: Male

DRUGS (6)
  1. OXYCODONE HCL [Concomitant]
     Indication: BACK PAIN
     Dosage: NOT REPORTED
  2. PREDNISONE TAB [Concomitant]
     Indication: MYASTHENIA GRAVIS
     Dosage: NOT REPORTED
  3. LIPITOR [Concomitant]
     Indication: BLOOD CHOLESTEROL INCREASED
     Dosage: NOT REPORTED
  4. OXYCONTIN [Concomitant]
     Indication: BACK PAIN
     Dosage: NOT REPORTED
  5. CELL SEPT [Concomitant]
     Indication: MYASTHENIA GRAVIS
     Dosage: NOT REPORTED
  6. ANDROGEL [Suspect]
     Indication: BLOOD TESTOSTERONE DECREASED
     Dosage: 2 PUMP PRESSES
     Route: 061
     Dates: start: 20120517

REACTIONS (2)
  - ORAL DISCOMFORT [None]
  - HEART RATE INCREASED [None]
